FAERS Safety Report 12927698 (Version 1)
Quarter: 2016Q4

REPORT INFORMATION
  Report Type: Spontaneous
  Country: US (occurrence: US)
  Receive Date: 20161109
  Receipt Date: 20161109
  Transmission Date: 20170207
  Serious: No
  Sender: FDA-Public Use
  Company Number: None

PATIENT
  Age: 42 Year
  Sex: Female
  Weight: 49.5 kg

DRUGS (4)
  1. BELSOMRA [Suspect]
     Active Substance: SUVOREXANT
     Indication: INSOMNIA
     Dosage: AT BEDTIME
     Route: 048
     Dates: start: 20160801, end: 20161017
  2. HRT [Concomitant]
     Active Substance: UNSPECIFIED INGREDIENT
  3. LEXAPRO [Concomitant]
     Active Substance: ESCITALOPRAM OXALATE
  4. XANAX [Concomitant]
     Active Substance: ALPRAZOLAM

REACTIONS (2)
  - Arthralgia [None]
  - Pain in extremity [None]

NARRATIVE: CASE EVENT DATE: 20161024
